FAERS Safety Report 23273493 (Version 1)
Quarter: 2023Q4

REPORT INFORMATION
  Report Type: Spontaneous
  Country: US (occurrence: US)
  Receive Date: 20231207
  Receipt Date: 20231207
  Transmission Date: 20240109
  Serious: No
  Sender: FDA-Public Use
  Company Number: US-FreseniusKabi-FK202319929

PATIENT
  Sex: Female

DRUGS (1)
  1. MAGNESIUM SULFATE HEPTAHYDRATE [Suspect]
     Active Substance: MAGNESIUM SULFATE HEPTAHYDRATE
     Indication: Pre-eclampsia
     Dosage: MAGNESIUM SULFATE IN WATER FOR INJECTION BAGS

REACTIONS (2)
  - Toxicity to various agents [Unknown]
  - Exposure during pregnancy [Unknown]
